FAERS Safety Report 8270258-X (Version None)
Quarter: 2012Q1

REPORT INFORMATION
  Report Type: 
  Country: None (occurrence: None)
  Receive Date: 20120327
  Receipt Date: 20100209
  Transmission Date: 20120608
  Serious: Yes (Hospitalization)
  Sender: FDA-Public Use
  Company Number: PHHY2010US08179

PATIENT
  Sex: Male

DRUGS (1)
  1. GLEEVEC [Suspect]
     Dosage: 400 MG, BID, ORAL
     Route: 048
     Dates: start: 20091007

REACTIONS (3)
  - OSTEOARTHRITIS [None]
  - HIP ARTHROPLASTY [None]
  - OSTEONECROSIS [None]
